FAERS Safety Report 8480146-1 (Version None)
Quarter: 2012Q2

REPORT INFORMATION
  Report Type: 
  Country: None (occurrence: None)
  Receive Date: 20120629
  Receipt Date: 20120517
  Transmission Date: 20120825
  Serious: Yes (Disabling, Other)
  Sender: FDA-Public Use
  Company Number: CA-GILEAD-2012-0052949

PATIENT
  Sex: Female

DRUGS (21)
  1. AMBRISENTAN [Suspect]
     Indication: PULMONARY HYPERTENSION
     Dosage: 5MG PER DAY
     Route: 048
     Dates: start: 20111020, end: 20111104
  2. METOPROLOL SUCCINATE [Concomitant]
     Indication: ATRIAL FIBRILLATION
     Dosage: UNK
  3. INFLUENZA VACCINE POLYVALENT [Suspect]
     Indication: PROPHYLAXIS
     Dosage: UNK, ONCE
     Route: 065
     Dates: start: 20110101, end: 20110101
  4. WARFARIN SODIUM [Concomitant]
     Dosage: .5MG PER DAY
  5. OXYGEN [Concomitant]
  6. SYMBICORT [Concomitant]
     Dosage: UNK DF, UNK
  7. VENTOLIN HFA [Concomitant]
  8. WARFARIN SODIUM [Concomitant]
     Dosage: .5MG PER DAY
  9. SYMBICORT [Concomitant]
     Dosage: 1U TWICE PER DAY
     Dates: start: 20100701
  10. SPIRIVA [Concomitant]
     Dosage: 18MCG PER DAY
  11. SPIRIVA [Concomitant]
     Dosage: 18MCG PER DAY
  12. LASIX [Concomitant]
     Dosage: 40MG IN THE MORNING
  13. L-THYROXINE                        /00068002/ [Concomitant]
     Dosage: .05MG TWICE PER DAY
  14. FUROSEMIDE [Concomitant]
     Indication: HYPERTENSION
  15. WARFARIN SODIUM [Concomitant]
     Indication: ATRIAL FIBRILLATION
     Dosage: UNK
  16. ACTONEL [Concomitant]
     Dosage: 150MG MONTHLY
  17. SPIRIVA [Concomitant]
     Dosage: 18MCG PER DAY
  18. METOPROLOL SUCCINATE [Concomitant]
     Dosage: 50MG TWICE PER DAY
  19. ACTONEL [Concomitant]
     Dosage: 150MG MONTHLY
  20. ACTONEL [Concomitant]
     Dosage: UNK
  21. METOPROLOL SUCCINATE [Concomitant]
     Dosage: 50MG TWICE PER DAY

REACTIONS (4)
  - DYSPNOEA [None]
  - OEDEMA PERIPHERAL [None]
  - PRODUCTIVE COUGH [None]
  - INCREASED UPPER AIRWAY SECRETION [None]
